FAERS Safety Report 23608000 (Version 9)
Quarter: 2024Q4

REPORT INFORMATION
  Report Type: Spontaneous
  Country: US (occurrence: US)
  Receive Date: 20240307
  Receipt Date: 20241224
  Transmission Date: 20250115
  Serious: Yes (Hospitalization, Other)
  Sender: BRISTOL-MYERS SQUIBB COMPANY
  Company Number: US-BRISTOL-MYERS SQUIBB COMPANY-2024-036090

PATIENT
  Age: 68 Year
  Sex: Male

DRUGS (6)
  1. POMALYST [Suspect]
     Active Substance: POMALIDOMIDE
     Indication: Plasma cell myeloma recurrent
     Dosage: QD FOR 14 DAYS ON AND 14 DAYS OFF
     Route: 048
  2. POMALYST [Suspect]
     Active Substance: POMALIDOMIDE
     Indication: Plasma cell myeloma
     Dosage: QD FOR 14 DAYS THEN 14 DAYS OFF
     Route: 048
  3. POMALYST [Suspect]
     Active Substance: POMALIDOMIDE
     Dosage: FREQUENCY: DAILY FOR 21 DAYS ON, 7 DAYS OFF
  4. POMALYST [Suspect]
     Active Substance: POMALIDOMIDE
     Dosage: FREQUENCY: DAILY FOR 14 DAYS ON, 14 DAYS OFF/QD
  5. POMALYST [Suspect]
     Active Substance: POMALIDOMIDE
     Route: 048
  6. POMALYST [Suspect]
     Active Substance: POMALIDOMIDE
     Dosage: DAILY FOR 14 DAYS, THEN 14 DAYS OFF
     Route: 048

REACTIONS (11)
  - Pneumonia [Unknown]
  - Full blood count decreased [Unknown]
  - Tremor [Unknown]
  - Off label use [Unknown]
  - Muscle spasms [Unknown]
  - White blood cell count decreased [Unknown]
  - Diarrhoea [Unknown]
  - Vomiting [Unknown]
  - Platelet count decreased [Unknown]
  - Neutrophil count decreased [Unknown]
  - Vitamin D decreased [Unknown]

NARRATIVE: CASE EVENT DATE: 20240501
